FAERS Safety Report 24787242 (Version 1)
Quarter: 2024Q4

REPORT INFORMATION
  Report Type: Spontaneous
  Country: TH (occurrence: TH)
  Receive Date: 20241230
  Receipt Date: 20241230
  Transmission Date: 20250114
  Serious: Yes (Other)
  Sender: MICRO LABS
  Company Number: TH-862174955-ML2024-06731

PATIENT
  Age: 84 Year
  Sex: Male

DRUGS (1)
  1. METFORMIN [Suspect]
     Active Substance: METFORMIN HYDROCHLORIDE
     Indication: Type 2 diabetes mellitus
     Dosage: FOR MORE THAN 25 YEARS

REACTIONS (7)
  - Subdural haematoma [Unknown]
  - Thrombocytopenia [Unknown]
  - Vitamin B12 deficiency [Recovering/Resolving]
  - Gait disturbance [Recovering/Resolving]
  - Fall [Recovering/Resolving]
  - Normocytic anaemia [Unknown]
  - Blood homocysteine increased [Unknown]
